FAERS Safety Report 13630490 (Version 1)
Quarter: 2017Q2

REPORT INFORMATION
  Report Type: Spontaneous
  Country: US (occurrence: US)
  Receive Date: 20170531
  Receipt Date: 20170531
  Transmission Date: 20170830
  Serious: No
  Sender: FDA-Public Use
  Company Number: US-ASTELLAS-1306266

PATIENT
  Sex: Female

DRUGS (3)
  1. TARCEVA [Suspect]
     Active Substance: ERLOTINIB HYDROCHLORIDE
     Indication: LUNG NEOPLASM MALIGNANT
     Dosage: DAILY
     Route: 048
     Dates: start: 20101116
  2. MELATONIN [Concomitant]
     Active Substance: MELATONIN
     Route: 065
  3. TARCEVA [Suspect]
     Active Substance: ERLOTINIB HYDROCHLORIDE
     Route: 048
     Dates: start: 20130404, end: 20140429

REACTIONS (10)
  - Onychoclasis [Unknown]
  - Hypoaesthesia [Not Recovered/Not Resolved]
  - Muscle spasms [Unknown]
  - Rhinorrhoea [Unknown]
  - Muscle spasms [Recovered/Resolved]
  - Bone pain [Recovered/Resolved]
  - Skin exfoliation [Unknown]
  - Pain in extremity [Unknown]
  - Hair growth abnormal [Unknown]
  - Therapeutic response decreased [Unknown]
